FAERS Safety Report 8334985-8 (Version None)
Quarter: 2012Q2

REPORT INFORMATION
  Report Type: 
  Country: None (occurrence: None)
  Receive Date: 20120503
  Receipt Date: 20120425
  Transmission Date: 20120825
  Serious: Yes (Death)
  Sender: FDA-Public Use
  Company Number: US-ACTELION-A-US2012-63397

PATIENT

DRUGS (5)
  1. DIGOXIN [Concomitant]
  2. COUMADIN [Concomitant]
  3. VIAGRA [Concomitant]
  4. OXYGEN [Concomitant]
  5. TRACLEER [Suspect]
     Indication: PULMONARY ARTERIAL HYPERTENSION
     Dosage: UNK
     Route: 048
     Dates: start: 20020328

REACTIONS (2)
  - CARDIAC FAILURE [None]
  - CARDIAC ARREST [None]
